FAERS Safety Report 25049257 (Version 1)
Quarter: 2025Q1

REPORT INFORMATION
  Report Type: Spontaneous
  Country: US (occurrence: US)
  Receive Date: 20250307
  Receipt Date: 20250307
  Transmission Date: 20250409
  Serious: No
  Sender: MERCK SHARP & DOHME LLC
  Company Number: US-PFIZER INC-202400319122

PATIENT
  Age: 65 Year
  Sex: Female

DRUGS (2)
  1. TUKYSA [Suspect]
     Active Substance: TUCATINIB
     Dosage: DOSE DESCRIPTION : 150 MG, 2X/DAY?DAILY DOSE : 300 MILLIGRAM?CONCENTRATION: 150 MILLIGRAM
     Route: 048
     Dates: start: 202409
  2. TUKYSA [Suspect]
     Active Substance: TUCATINIB
     Dosage: SECOND REGIMEN (ONGOING)?DOSE DESCRIPTION : 300 MG, 2X/DAY?DAILY DOSE : 600 MILLIGRAM?CONCENTRATI...
     Route: 048

REACTIONS (2)
  - Off label use [Unknown]
  - Product use issue [Unknown]

NARRATIVE: CASE EVENT DATE: 20240901
